FAERS Safety Report 8491031-3 (Version None)
Quarter: 2012Q2

REPORT INFORMATION
  Report Type: 
  Country: None (occurrence: None)
  Receive Date: 20120627
  Receipt Date: 20120619
  Transmission Date: 20120825
  Serious: Yes (Other)
  Sender: FDA-Public Use
  Company Number: JPI-P-022147

PATIENT
  Age: 31 Year
  Sex: Male

DRUGS (5)
  1. XYREM [Suspect]
     Indication: PRODUCT USED FOR UNKNOWN INDICATION
     Dosage: ORAL
     Route: 048
     Dates: start: 20070530
  2. FLUOXETINE (UNKNOWN) [Concomitant]
  3. CLONAZEPAM [Concomitant]
  4. UNSPECIFIED MEDICATIONS (UNKNOWN) [Suspect]
     Indication: PRODUCT USED FOR UNKNOWN INDICATION
  5. METHYLPHENIDATE HYDROCHLORIDE (UNKNOWN) [Concomitant]

REACTIONS (1)
  - CEREBROVASCULAR ACCIDENT [None]
